FAERS Safety Report 13362898 (Version 5)
Quarter: 2017Q3

REPORT INFORMATION
  Report Type: Spontaneous
  Country: US (occurrence: US)
  Receive Date: 20170323
  Receipt Date: 20170710
  Transmission Date: 20171127
  Serious: Yes (Life-Threatening, Other)
  Sender: FDA-Public Use
  Company Number: US-AUROBINDO-AUR-APL-2017-31263

PATIENT
  Age: 29 Year
  Sex: Female
  Weight: 87.3 kg

DRUGS (5)
  1. BUPIVACAINE HYDROCHLORIDE. [Suspect]
     Active Substance: BUPIVACAINE HYDROCHLORIDE
     Indication: CAESAREAN SECTION
     Dosage: 25 MG, COMBINED SPINAL EPIDURAL
     Route: 008
  2. CHLORHEXIDINE [Concomitant]
     Active Substance: CHLORHEXIDINE
     Indication: PRODUCT USED FOR UNKNOWN INDICATION
  3. LIDOCAINE 10MG/ML [Suspect]
     Active Substance: LIDOCAINE
     Indication: PRODUCT USED FOR UNKNOWN INDICATION
     Dosage: 2 ML, UNK
     Route: 037
  4. FENTANYL. [Suspect]
     Active Substance: FENTANYL
     Indication: CAESAREAN SECTION
     Dosage: 50 MCG/ML, UNK
     Route: 037
  5. LIDOCAINE 1.5%, EPINEPHRINE 1:200,000 [Suspect]
     Active Substance: EPINEPHRINE\LIDOCAINE HYDROCHLORIDE
     Indication: PRODUCT USED FOR UNKNOWN INDICATION

REACTIONS (9)
  - Accidental exposure to product [Recovering/Resolving]
  - Maternal exposure during pregnancy [Recovered/Resolved]
  - Sinus tachycardia [Recovering/Resolving]
  - Palpitations [Recovering/Resolving]
  - Feeling abnormal [Recovering/Resolving]
  - Dysgeusia [Recovering/Resolving]
  - Anaesthetic complication [Recovered/Resolved]
  - Toxicity to various agents [Recovering/Resolving]
  - Tinnitus [Recovering/Resolving]
